FAERS Safety Report 6966812-5 (Version None)
Quarter: 2010Q3

REPORT INFORMATION
  Report Type: 
  Country: None (occurrence: None)
  Receive Date: 20100906
  Receipt Date: 20100824
  Transmission Date: 20110219
  Serious: Yes (Other)
  Sender: FDA-Public Use
  Company Number: PHHY2010AU57286

PATIENT
  Sex: Male

DRUGS (1)
  1. ZOLEDRONIC [Suspect]
     Dosage: UNK
     Route: 042
     Dates: start: 20090824

REACTIONS (4)
  - ARTHRITIS [None]
  - ASTHMA [None]
  - RESPIRATORY DISORDER [None]
  - SPONDYLITIS [None]
